FAERS Safety Report 18534028 (Version 1)
Quarter: 2020Q4

REPORT INFORMATION
  Report Type: Spontaneous
  Country: US (occurrence: US)
  Receive Date: 20201123
  Receipt Date: 20201123
  Transmission Date: 20210114
  Serious: No
  Sender: FDA-Public Use
  Company Number: US-PFIZER INC-2020454203

PATIENT
  Age: 48 Year
  Sex: Female

DRUGS (1)
  1. KETAMINE HCL [Suspect]
     Active Substance: KETAMINE HYDROCHLORIDE
     Indication: HIGH FREQUENCY ABLATION
     Dosage: UNK

REACTIONS (1)
  - Crying [Unknown]
